FAERS Safety Report 4676682-6 (Version None)
Quarter: 2005Q2

REPORT INFORMATION
  Report Type: 
  Country: None (occurrence: None)
  Receive Date: 20050527
  Receipt Date: 20050516
  Transmission Date: 20051028
  Serious: Yes (Hospitalization)
  Sender: FDA-Public Use
  Company Number: 2005UW07651

PATIENT
  Age: 55 Year
  Sex: Male

DRUGS (7)
  1. CRESTOR [Suspect]
     Route: 048
     Dates: start: 20050401
  2. CARDIZEM CD [Concomitant]
  3. RELAFEN [Concomitant]
  4. ECOTRIN [Concomitant]
  5. WELLBUTRIN [Concomitant]
  6. LOPRESSOR [Concomitant]
  7. NORCO [Concomitant]
     Indication: PAIN

REACTIONS (1)
  - RHABDOMYOLYSIS [None]
